FAERS Safety Report 8107712-7 (Version None)
Quarter: 2012Q1

REPORT INFORMATION
  Report Type: 
  Country: None (occurrence: None)
  Receive Date: 20120202
  Receipt Date: 20120126
  Transmission Date: 20120608
  Serious: No
  Sender: FDA-Public Use
  Company Number: US-JNJFOC-20120112867

PATIENT
  Age: 43 Year
  Sex: Female

DRUGS (4)
  1. INVEGA [Suspect]
     Route: 048
     Dates: start: 20120124, end: 20120125
  2. LITHIUM CARBONATE [Concomitant]
     Indication: SCHIZOPHRENIA
     Route: 065
  3. DEPAKOTE [Concomitant]
     Indication: SCHIZOPHRENIA
     Route: 048
  4. INVEGA [Suspect]
     Indication: SCHIZOPHRENIA
     Route: 048

REACTIONS (2)
  - DRUG TOLERANCE DECREASED [None]
  - SEDATION [None]
